FAERS Safety Report 7787599-2 (Version None)
Quarter: 2011Q3

REPORT INFORMATION
  Report Type: 
  Country: None (occurrence: None)
  Receive Date: 20110929
  Receipt Date: 20110920
  Transmission Date: 20111222
  Serious: Yes (Hospitalization, Other)
  Sender: FDA-Public Use
  Company Number: US-ASTRAZENECA-2011SE24441

PATIENT
  Age: 86 Year
  Sex: Female

DRUGS (1)
  1. NEXIUM [Suspect]
     Route: 048

REACTIONS (10)
  - BALANCE DISORDER [None]
  - BRAIN NEOPLASM [None]
  - OESOPHAGEAL NEOPLASM [None]
  - COUGH [None]
  - PNEUMONIA [None]
  - COLON CANCER [None]
  - MALAISE [None]
  - DRUG DOSE OMISSION [None]
  - POLYDIPSIA [None]
  - GASTROOESOPHAGEAL REFLUX DISEASE [None]
